FAERS Safety Report 8619407-1 (Version None)
Quarter: 2012Q3

REPORT INFORMATION
  Report Type: 
  Country: None (occurrence: None)
  Receive Date: 20120824
  Receipt Date: 20120822
  Transmission Date: 20120928
  Serious: Yes (Other)
  Sender: FDA-Public Use
  Company Number: US-PFIZER INC-2012190882

PATIENT
  Age: 64 Year
  Sex: Male

DRUGS (2)
  1. DICLOFENAC [Concomitant]
     Indication: PAIN
     Dosage: UNK
  2. NARDIL [Suspect]
     Indication: SOCIAL PHOBIA
     Dosage: 15 MG, 2X/DAY
     Route: 048
     Dates: start: 20080101

REACTIONS (2)
  - PSORIASIS [None]
  - SEXUAL DYSFUNCTION [None]
